FAERS Safety Report 26087251 (Version 1)
Quarter: 2025Q4

REPORT INFORMATION
  Report Type: Spontaneous
  Country: GB (occurrence: GB)
  Receive Date: 20251125
  Receipt Date: 20251125
  Transmission Date: 20260118
  Serious: Yes (Other)
  Sender: TEVA
  Company Number: None

PATIENT
  Sex: Male

DRUGS (2)
  1. AMLODIPINE [Suspect]
     Active Substance: AMLODIPINE BESYLATE
     Indication: Blood pressure increased
     Dosage: DAILY DOSAGE: 5MG, I WAS ON DRUGS MADE BY SANDOZ AND TEVA
     Route: 065
     Dates: start: 20240607, end: 20250508
  2. AMLODIPINE [Suspect]
     Active Substance: AMLODIPINE BESYLATE
     Indication: Blood pressure increased
     Dosage: DAILY DOSAGE: 5MG, I WAS ON DRUGS MADE BY SANDOZ AND TEVA
     Route: 065
     Dates: start: 20240607, end: 20250508

REACTIONS (1)
  - Joint swelling [Recovered/Resolved]

NARRATIVE: CASE EVENT DATE: 20250406
